FAERS Safety Report 4271222-8 (Version None)
Quarter: 2004Q1

REPORT INFORMATION
  Report Type: 
  Country: None (occurrence: None)
  Receive Date: 20040113
  Receipt Date: 20031230
  Transmission Date: 20041129
  Serious: Yes (Hospitalization)
  Sender: FDA-Public Use
  Company Number: F01200301560

PATIENT
  Age: 83 Year
  Sex: Male

DRUGS (3)
  1. ALFUZOSIN - TBLET PR - 10 MG [Suspect]
     Indication: BENIGN PROSTATIC HYPERPLASIA
     Dosage: 10 MG OD, ORAL
     Route: 048
     Dates: start: 20030805, end: 20030918
  2. ADALAT 9NIFEDIPINE) [Concomitant]
  3. HERBEN (DILTIAZEM) [Concomitant]

REACTIONS (6)
  - ABDOMINAL DISCOMFORT [None]
  - ABDOMINAL DISTENSION [None]
  - ATRIOVENTRICULAR BLOCK [None]
  - CARDIOMEGALY [None]
  - PLEURAL EFFUSION [None]
  - PULMONARY CONGESTION [None]
